FAERS Safety Report 19221187 (Version 6)
Quarter: 2022Q1

REPORT INFORMATION
  Report Type: Spontaneous
  Country: US (occurrence: US)
  Receive Date: 20210506
  Receipt Date: 20220110
  Transmission Date: 20220423
  Serious: No
  Sender: FDA-Public Use
  Company Number: US-BRISTOL-MYERS SQUIBB COMPANY-BMS-2021-044238

PATIENT
  Age: 43 Year
  Sex: Female

DRUGS (3)
  1. ORENCIA [Suspect]
     Active Substance: ABATACEPT
     Indication: Rheumatoid arthritis
     Dosage: 125 MILLIGRAM, QWK
     Route: 058
     Dates: start: 20200214
  2. ORENCIA [Suspect]
     Active Substance: ABATACEPT
     Indication: Juvenile idiopathic arthritis
     Dosage: 125 MILLIGRAM, QWK
     Route: 058
     Dates: start: 202003
  3. ORENCIA [Suspect]
     Active Substance: ABATACEPT
     Indication: Hypogammaglobulinaemia

REACTIONS (12)
  - Arthralgia [Unknown]
  - Inflammation [Unknown]
  - Drug ineffective [Unknown]
  - Joint swelling [Unknown]
  - Infection [Unknown]
  - Weight fluctuation [Unknown]
  - Infusion site pain [Unknown]
  - Infusion site pruritus [Unknown]
  - Urine output decreased [Unknown]
  - Decreased appetite [Unknown]
  - Dyspnoea [Unknown]
  - Swelling [Unknown]
